FAERS Safety Report 11236379 (Version 10)
Quarter: 2016Q1

REPORT INFORMATION
  Report Type: Report from Study
  Country: US (occurrence: US)
  Receive Date: 20150702
  Receipt Date: 20160328
  Transmission Date: 20160525
  Serious: Yes (Disabling, Other)
  Sender: FDA-Public Use
  Company Number: PHEH2015US005613

PATIENT
  Sex: Female
  Weight: 92.63 kg

DRUGS (11)
  1. BIOTIN [Concomitant]
     Active Substance: BIOTIN
     Indication: PRODUCT USED FOR UNKNOWN INDICATION
     Dosage: 1 MG, UNK
     Route: 065
  2. BENADRYL//ACRIVASTINE [Concomitant]
     Indication: PRODUCT USED FOR UNKNOWN INDICATION
     Dosage: 25 MG, UNK
     Route: 065
  3. VITAMIN D [Concomitant]
     Active Substance: CHOLECALCIFEROL
     Indication: PRODUCT USED FOR UNKNOWN INDICATION
     Dosage: UNK
     Route: 065
  4. GILENYA [Suspect]
     Active Substance: FINGOLIMOD HYDROCHLORIDE
     Indication: MULTIPLE SCLEROSIS
     Dosage: 0.5 MG, QD
     Route: 048
     Dates: start: 20150313
  5. GILENYA [Suspect]
     Active Substance: FINGOLIMOD HYDROCHLORIDE
     Dosage: 0.5 MG, QD
     Route: 048
     Dates: end: 20160121
  6. SERTRALINE HYDROCHLORIDE. [Concomitant]
     Active Substance: SERTRALINE HYDROCHLORIDE
     Indication: PRODUCT USED FOR UNKNOWN INDICATION
     Dosage: 25 MG, UNK
     Route: 065
  7. CHLORTRIMETON [Concomitant]
     Active Substance: CHLORPHENIRAMINE MALEATE
     Indication: PRODUCT USED FOR UNKNOWN INDICATION
     Dosage: 4 MG, UNK
     Route: 065
  8. GABAPENTIN. [Concomitant]
     Active Substance: GABAPENTIN
     Indication: PRODUCT USED FOR UNKNOWN INDICATION
     Dosage: 100 MG, UNK
     Route: 065
  9. DAILY MULTIVITAMIN [Concomitant]
     Active Substance: VITAMINS
     Indication: PRODUCT USED FOR UNKNOWN INDICATION
     Dosage: UNK
     Route: 065
  10. MELOXICAM. [Concomitant]
     Active Substance: MELOXICAM
     Indication: PRODUCT USED FOR UNKNOWN INDICATION
     Dosage: 15 MG, UNK
     Route: 065
  11. LYRICA [Concomitant]
     Active Substance: PREGABALIN
     Indication: PRODUCT USED FOR UNKNOWN INDICATION
     Dosage: UNK
     Route: 065

REACTIONS (34)
  - Rash [Not Recovered/Not Resolved]
  - Dry skin [Not Recovered/Not Resolved]
  - Influenza like illness [Unknown]
  - Posterior reversible encephalopathy syndrome [Unknown]
  - Arthropathy [Unknown]
  - Vision blurred [Unknown]
  - Language disorder [Unknown]
  - Headache [Not Recovered/Not Resolved]
  - Hiccups [Unknown]
  - Multiple sclerosis [Unknown]
  - Gait disturbance [Unknown]
  - Central nervous system lesion [Not Recovered/Not Resolved]
  - Fatigue [Unknown]
  - Dizziness [Unknown]
  - Post-traumatic stress disorder [Unknown]
  - Swelling [Recovering/Resolving]
  - General physical health deterioration [Unknown]
  - Muscle spasms [Not Recovered/Not Resolved]
  - Gastrointestinal disorder [Unknown]
  - Depressed mood [Unknown]
  - Limb discomfort [Unknown]
  - Dermatitis contact [Unknown]
  - Acne [Unknown]
  - Loss of consciousness [Unknown]
  - Multiple sclerosis relapse [Unknown]
  - Astigmatism [Not Recovered/Not Resolved]
  - Ephelides [Unknown]
  - Weight increased [Recovering/Resolving]
  - Memory impairment [Unknown]
  - Drug ineffective [Unknown]
  - Fall [Unknown]
  - Spinal disorder [Unknown]
  - Nausea [Recovering/Resolving]
  - Musculoskeletal pain [Recovering/Resolving]
